FAERS Safety Report 10241101 (Version 1)
Quarter: 2014Q2

REPORT INFORMATION
  Report Type: Spontaneous
  Country: NO (occurrence: None)
  Receive Date: 20140613
  Receipt Date: 20140613
  Transmission Date: 20141212
  Serious: Yes (Other)
  Sender: FDA-Public Use
  Company Number: 2379091

PATIENT
  Age: 15 Year
  Sex: Female

DRUGS (14)
  1. VINCRISTINE SULFATE [Suspect]
     Indication: NON-HODGKIN^S LYMPHOMA
     Dosage: 1.5 MG/M 2 MILLIGRAM(S)/SQ. METER (UNKNOWN), INTRAVENOUS (NOT OTHERWISE SPECIFIED)?
     Route: 042
  2. METHOTREXATE [Suspect]
     Indication: NON-HODGKIN^S LYMPHOMA
     Dosage: 1500 MG/M 2 MILLIGRAM(S)/SQ. METER (UNKNOWN), INTRAVENOUS (NOT OTHERWISE SPECIFIED)?
     Route: 042
  3. METHOTREXATE [Suspect]
     Indication: NON-HODGKIN^S LYMPHOMA
     Dosage: 1500 MG/M 2 MILLIGRAM(S)/SQ. METER (UNKNOWN), INTRAVENOUS (NOT OTHERWISE SPECIFIED)?
     Route: 042
  4. THIOGUANINE [Suspect]
     Indication: NON-HODGKIN^S LYMPHOMA
     Dosage: 150 MG/M 2 MILLIGRAM(S)/SQ. METER (UNKNOWN), INTRAVENOUS (NOT OTHERWISE SPECIFIED)??
     Route: 042
  5. MERCAPTOPURINE [Suspect]
     Indication: NON-HODGKIN^S LYMPHOMA
     Dosage: 35 MG/M 2 MILLIGRAM(S)/SQ. METER (UNKNOWN), ORAL
     Route: 048
  6. DAUNORUBICIN [Suspect]
     Indication: NON-HODGKIN^S LYMPHOMA
     Dosage: 50 MG/M 2 MILLIGRAM(S)/SQ. METER (UNKNOWN), INTRAVENOUS (NOT OTHERWISE SPECIFIED)?
     Route: 042
  7. DOXORUBICIN [Suspect]
     Indication: NON-HODGKIN^S LYMPHOMA
     Dosage: 30 MG/M 2 MILLIGRAM(S)/SQ. METER (UNKNOWN), INTRAVENOUS (NOT OTHERWISE SPECIFIED)
     Route: 042
  8. PREDNISONE [Suspect]
     Indication: NON-HODGKIN^S LYMPHOMA
     Dosage: 40 MG/M 2 MILLIGRAM(S)/SQ. METER (UNKNOWN), ORAL
     Route: 048
  9. PREDNISONE [Suspect]
     Indication: NON-HODGKIN^S LYMPHOMA
     Dosage: 40 MG/M 2 MILLIGRAM(S)/SQ. METER (UNKNOWN), ORAL
     Route: 048
  10. CYCLOPHOSPHAMIDE [Suspect]
     Indication: NON-HODGKIN^S LYMPHOMA
     Dosage: 750 MG/M 2 MILLIGRAM(S)/SQ. METER (UNKNOWN), INTRAVENOUS (NOT OTHERWISE SPECIFIED)?
     Route: 042
  11. L-ASPARAGINASE [Suspect]
     Indication: NON-HODGKIN^S LYMPHOMA
     Dosage: 10000 IU INTERNATIONAL UNIT(S) (UNKNOWN), INTRAVENOUS (NOT OTHERWISE SPECIFIED)
     Route: 042
  12. CYTARABINE [Suspect]
     Indication: NON-HODGKIN^S LYMPHOMA
     Dosage: 200 MG/M 2 MILLIGRAM(S)/SQ. METER (UNKNOWN), INTRAVENOUS (NOT OTHERWISE SPECIFIED)?
     Route: 042
  13. CYTARABINE [Suspect]
     Indication: NON-HODGKIN^S LYMPHOMA
     Dosage: 200 MG/M 2 MILLIGRAM(S)/SQ. METER (UNKNOWN), INTRAVENOUS (NOT OTHERWISE SPECIFIED)?
     Route: 042
  14. GRANULOCYTE COLONY-STIMULATING FACTOR NOS [Suspect]
     Indication: PERIPHERAL BLOOD STEM CELL APHERESIS

REACTIONS (2)
  - Febrile neutropenia [None]
  - Haematotoxicity [None]
